FAERS Safety Report 10182712 (Version 1)
Quarter: 2014Q2

REPORT INFORMATION
  Report Type: Spontaneous
  Country: US (occurrence: None)
  Receive Date: 20140519
  Receipt Date: 20140519
  Transmission Date: 20141212
  Serious: Yes (Life-Threatening, Disabling, Other)
  Sender: FDA-Public Use
  Company Number: None

PATIENT
  Age: 31 Year
  Sex: Female
  Weight: 145.15 kg

DRUGS (3)
  1. OMNIPAQUE [Suspect]
     Indication: ILL-DEFINED DISORDER
     Dates: start: 20110419
  2. DEXAMETHASONE [Suspect]
  3. MARCAINE [Suspect]

REACTIONS (6)
  - Vertigo [None]
  - Fall [None]
  - Sudden hearing loss [None]
  - Influenza like illness [None]
  - Nausea [None]
  - Meningitis [None]
